FAERS Safety Report 23985217 (Version 2)
Quarter: 2024Q2

REPORT INFORMATION
  Report Type: Spontaneous
  Country: KR (occurrence: KR)
  Receive Date: 20240618
  Receipt Date: 20240620
  Transmission Date: 20240715
  Serious: Yes (Death, Hospitalization)
  Sender: FDA-Public Use
  Company Number: KR-DSJP-DSJ-2024-126869

PATIENT
  Sex: Male
  Weight: 78 kg

DRUGS (1)
  1. TRASTUZUMAB DERUXTECAN [Suspect]
     Active Substance: TRASTUZUMAB DERUXTECAN
     Indication: Lung neoplasm malignant
     Dosage: UNK
     Route: 065

REACTIONS (2)
  - Death [Fatal]
  - Metastases to lung [Unknown]
